FAERS Safety Report 19866347 (Version 1)
Quarter: 2021Q3

REPORT INFORMATION
  Report Type: Spontaneous
  Country: US (occurrence: US)
  Receive Date: 20210922
  Receipt Date: 20210922
  Transmission Date: 20211014
  Serious: Yes (Disabling)
  Sender: FDA-Public Use
  Company Number: None

PATIENT
  Age: 45 Year
  Sex: Female

DRUGS (1)
  1. DEXTROAMPHET SACCHARAT, AMPHET ASPARTATE, DEXTROAMPHET SULFATE AND AMPHET SULFAT [Suspect]
     Active Substance: AMPHETAMINE ASPARTATE\AMPHETAMINE SULFATE\DEXTROAMPHETAMINE SACCHARATE\DEXTROAMPHETAMINE SULFATE
     Indication: ATTENTION DEFICIT HYPERACTIVITY DISORDER
     Dosage: ?          QUANTITY:30 CAPSULE(S);OTHER FREQUENCY:HALF IN AM HALF PM;?
     Route: 048
     Dates: start: 20210722, end: 20210820

REACTIONS (4)
  - Drug ineffective [None]
  - Product quality issue [None]
  - Product tampering [None]
  - Product substitution issue [None]

NARRATIVE: CASE EVENT DATE: 20210722
